FAERS Safety Report 9245938 (Version 1)
Quarter: 2013Q2

REPORT INFORMATION
  Report Type: Report from Study
  Country: US (occurrence: US)
  Receive Date: 20130422
  Receipt Date: 20130422
  Transmission Date: 20140414
  Serious: Yes (Hospitalization, Other)
  Sender: FDA-Public Use
  Company Number: US-ABBOTT-13P-163-1076339-00

PATIENT
  Sex: Female

DRUGS (1)
  1. HUMIRA [Suspect]
     Indication: CROHN^S DISEASE
     Dates: start: 2009

REACTIONS (7)
  - Asthenia [Recovered/Resolved]
  - Gastrointestinal haemorrhage [Recovered/Resolved]
  - Staphylococcal infection [Recovered/Resolved]
  - Contusion [Recovered/Resolved]
  - Small intestinal resection [Unknown]
  - Impaired work ability [Unknown]
  - Weight decreased [Unknown]
